FAERS Safety Report 4700426-2 (Version None)
Quarter: 2005Q2

REPORT INFORMATION
  Report Type: 
  Country: None (occurrence: None)
  Receive Date: 20050627
  Receipt Date: 20050316
  Transmission Date: 20051028
  Serious: Yes (Other)
  Sender: FDA-Public Use
  Company Number: JP-ROCHE-399595

PATIENT
  Age: 6 Year
  Sex: Female

DRUGS (5)
  1. TAMIFLU [Suspect]
     Route: 048
     Dates: start: 20050226, end: 20050227
  2. TAMIFLU [Suspect]
     Route: 048
     Dates: start: 20050228, end: 20050228
  3. LYSOZYME HYDROCHLORIDE [Concomitant]
     Route: 048
     Dates: start: 20050226, end: 20050228
  4. MEIACT [Concomitant]
     Route: 048
     Dates: start: 20050226, end: 20050228
  5. KETOTIFEN [Concomitant]
     Route: 048
     Dates: start: 20050226, end: 20050228

REACTIONS (2)
  - HYPOTHERMIA [None]
  - LETHARGY [None]
